FAERS Safety Report 12928541 (Version 2)
Quarter: 2016Q4

REPORT INFORMATION
  Report Type: Spontaneous
  Country: US (occurrence: US)
  Receive Date: 20161110
  Receipt Date: 20161129
  Transmission Date: 20170207
  Serious: Yes (Death, Hospitalization, Other)
  Sender: FDA-Public Use
  Company Number: US-AMGEN-USASP2016155370

PATIENT
  Age: 64 Year
  Sex: Female

DRUGS (1)
  1. ENBREL [Suspect]
     Active Substance: ETANERCEPT
     Indication: RHEUMATOID ARTHRITIS
     Dosage: 50 MG, QWK
     Route: 058
     Dates: start: 201605

REACTIONS (5)
  - Abasia [Unknown]
  - Diabetes mellitus [Unknown]
  - Urinary tract infection [Unknown]
  - Pain in extremity [Unknown]
  - Acute kidney injury [Fatal]

NARRATIVE: CASE EVENT DATE: 2016
